FAERS Safety Report 9160098 (Version 2)
Quarter: 2013Q2

REPORT INFORMATION
  Report Type: Spontaneous
  Country: GR (occurrence: GR)
  Receive Date: 20130313
  Receipt Date: 20130426
  Transmission Date: 20140414
  Serious: Yes (Other)
  Sender: FDA-Public Use
  Company Number: GR-ELI_LILLY_AND_COMPANY-GR201303002479

PATIENT
  Age: 70 Year
  Sex: Female

DRUGS (1)
  1. PEMETREXED [Suspect]
     Indication: LUNG NEOPLASM MALIGNANT
     Dosage: 500 MG/M2, UNK

REACTIONS (2)
  - Cellulitis [Recovered/Resolved]
  - Neuropathy peripheral [Recovered/Resolved]
